FAERS Safety Report 18575983 (Version 10)
Quarter: 2025Q2

REPORT INFORMATION
  Report Type: Report from Study
  Country: US (occurrence: US)
  Receive Date: 20201203
  Receipt Date: 20250616
  Transmission Date: 20250717
  Serious: Yes (Hospitalization, Other)
  Sender: TAKEDA
  Company Number: US-TAKEDA-US201935391

PATIENT
  Age: 72 Year
  Sex: Female
  Weight: 61 kg

DRUGS (19)
  1. HUMAN IMMUNOGLOBULIN G [Suspect]
     Active Substance: HUMAN IMMUNOGLOBULIN G
     Indication: Immunodeficiency common variable
     Dosage: 22 GRAM, Q2WEEKS
  2. HUMAN IMMUNOGLOBULIN G [Suspect]
     Active Substance: HUMAN IMMUNOGLOBULIN G
     Indication: Primary immunodeficiency syndrome
  3. HUMAN IMMUNOGLOBULIN G [Suspect]
     Active Substance: HUMAN IMMUNOGLOBULIN G
     Dosage: 22 GRAM, Q2WEEKS
  4. ACETAMINOPHEN [Concomitant]
     Active Substance: ACETAMINOPHEN
  5. SPIRIVA RESPIMAT [Concomitant]
     Active Substance: TIOTROPIUM BROMIDE
  6. SINGULAIR [Concomitant]
     Active Substance: MONTELUKAST SODIUM
  7. ADDERALL [Concomitant]
     Active Substance: AMPHETAMINE ASPARTATE\AMPHETAMINE SULFATE\DEXTROAMPHETAMINE SACCHARATE\DEXTROAMPHETAMINE SULFATE
  8. TRINTELLIX [Concomitant]
     Active Substance: VORTIOXETINE HYDROBROMIDE
  9. LIDOCAINE [Concomitant]
     Active Substance: LIDOCAINE
  10. LAMICTAL [Concomitant]
     Active Substance: LAMOTRIGINE
  11. TOPROL XL [Concomitant]
     Active Substance: METOPROLOL SUCCINATE
  12. ESTRADIOL [Concomitant]
     Active Substance: ESTRADIOL
  13. TRAZODONE HCL [Concomitant]
     Active Substance: TRAZODONE HYDROCHLORIDE
  14. DIPHENHYDRAMINE HYDROCHLORIDE [Concomitant]
     Active Substance: DIPHENHYDRAMINE HYDROCHLORIDE
  15. STRATTERA [Concomitant]
     Active Substance: ATOMOXETINE HYDROCHLORIDE
  16. ZYRTEC [Concomitant]
     Active Substance: CETIRIZINE HYDROCHLORIDE
  17. SYMBICORT [Concomitant]
     Active Substance: BUDESONIDE\FORMOTEROL FUMARATE DIHYDRATE
  18. SYNTHROID [Concomitant]
     Active Substance: LEVOTHYROXINE SODIUM
  19. ALPRAZOLAM [Concomitant]
     Active Substance: ALPRAZOLAM

REACTIONS (14)
  - Spinal stenosis [Unknown]
  - Dislocation of vertebra [Unknown]
  - Road traffic accident [Unknown]
  - Psoriasis [Unknown]
  - COVID-19 [Recovering/Resolving]
  - Lung disorder [Unknown]
  - Multiple allergies [Unknown]
  - Urinary tract infection [Not Recovered/Not Resolved]
  - Dysphonia [Unknown]
  - Lymphatic disorder [Unknown]
  - Intervertebral disc protrusion [Unknown]
  - Back disorder [Not Recovered/Not Resolved]
  - Dyspnoea [Unknown]
  - Hypoaesthesia [Unknown]

NARRATIVE: CASE EVENT DATE: 20201125
